FAERS Safety Report 6699797-X (Version None)
Quarter: 2010Q2

REPORT INFORMATION
  Report Type: 
  Country: None (occurrence: None)
  Receive Date: 20100427
  Receipt Date: 20100427
  Transmission Date: 20101027
  Serious: No
  Sender: FDA-Public Use
  Company Number: None

PATIENT
  Age: 48 Year
  Sex: Female
  Weight: 70.3075 kg

DRUGS (1)
  1. CLOTRIMAZOLE [Suspect]
     Indication: ORAL CANDIDIASIS
     Dates: start: 20100422, end: 20100423

REACTIONS (2)
  - DYSPEPSIA [None]
  - GASTROOESOPHAGEAL REFLUX DISEASE [None]
